FAERS Safety Report 7734023-1 (Version None)
Quarter: 2011Q3

REPORT INFORMATION
  Report Type: 
  Country: None (occurrence: None)
  Receive Date: 20110901
  Receipt Date: 20110817
  Transmission Date: 20111222
  Serious: Yes (Hospitalization, Disabling, Other)
  Sender: FDA-Public Use
  Company Number: 2010MA001018

PATIENT
  Sex: Male
  Weight: 99.7913 kg

DRUGS (37)
  1. LORCET-HD [Concomitant]
  2. NEXIUM [Concomitant]
  3. CELEXA [Concomitant]
  4. BACLOFEN [Concomitant]
  5. BENTYL [Concomitant]
  6. TRAZODONE HCL [Concomitant]
  7. ZOCOR [Concomitant]
  8. FIORINAL [Concomitant]
  9. DARVOCET [Concomitant]
  10. LOVAZA [Concomitant]
  11. GEMFIBROZIL [Concomitant]
  12. HYDROCHLOROTHIAZIDE [Concomitant]
  13. AMOXICILLIN [Concomitant]
  14. METOCLOPRAMIDE [Suspect]
     Dosage: 50 MG;UNK;UNK
     Dates: start: 20070101, end: 20090101
  15. HYDROCODONE [Concomitant]
  16. CATAFLAM [Concomitant]
  17. FIORICET [Concomitant]
  18. DARVOCET [Concomitant]
  19. ROXICODONE [Concomitant]
  20. OXYCONTIN [Concomitant]
  21. AMBIEN [Concomitant]
  22. DIAZEPAM [Concomitant]
  23. SIMVASTATIN [Concomitant]
  24. IMITREX [Concomitant]
  25. PERCOCET [Concomitant]
  26. ELAVIL [Concomitant]
  27. PREVPAC [Concomitant]
  28. MOBIC [Concomitant]
  29. CLONIDINE [Concomitant]
  30. ZYPREXA [Concomitant]
  31. CARAFATE [Concomitant]
  32. PROPOXYPHENE HYDROCHLORIDE [Concomitant]
  33. NEURONTIN [Concomitant]
  34. PRILOSEC [Concomitant]
  35. ZANTAC [Concomitant]
  36. XANAX [Concomitant]
  37. DONNATAL [Concomitant]

REACTIONS (52)
  - TARDIVE DYSKINESIA [None]
  - PAIN [None]
  - QUALITY OF LIFE DECREASED [None]
  - ECONOMIC PROBLEM [None]
  - FRACTURE NONUNION [None]
  - HEPATIC ENZYME INCREASED [None]
  - SOMNOLENCE [None]
  - SUBSTANCE ABUSE [None]
  - PERSONALITY CHANGE [None]
  - PAIN IN JAW [None]
  - TOOTH FRACTURE [None]
  - NERVOUS SYSTEM DISORDER [None]
  - GRIMACING [None]
  - HELICOBACTER TEST POSITIVE [None]
  - PRESYNCOPE [None]
  - DEPRESSION [None]
  - DRUG SCREEN POSITIVE [None]
  - HEADACHE [None]
  - INSOMNIA [None]
  - PAIN IN EXTREMITY [None]
  - EXTRAPYRAMIDAL DISORDER [None]
  - ANXIETY [None]
  - INAPPROPRIATE SCHEDULE OF DRUG ADMINISTRATION [None]
  - ALCOHOL USE [None]
  - POST-TRAUMATIC STRESS DISORDER [None]
  - STEREOTYPY [None]
  - FAMILY STRESS [None]
  - BONE GRAFT [None]
  - BLOOD PRESSURE INCREASED [None]
  - ERECTILE DYSFUNCTION [None]
  - BALANCE DISORDER [None]
  - MUSCLE SPASMS [None]
  - BRUXISM [None]
  - TOOTH EXTRACTION [None]
  - AGITATION [None]
  - RECTAL HAEMORRHAGE [None]
  - FALL [None]
  - ARTHRALGIA [None]
  - DYSKINESIA [None]
  - ACTIVITIES OF DAILY LIVING IMPAIRED [None]
  - DEFORMITY [None]
  - PROTRUSION TONGUE [None]
  - BLOOD GLUCOSE INCREASED [None]
  - DIZZINESS [None]
  - JOINT INJURY [None]
  - CHILLS [None]
  - REFUSAL OF TREATMENT BY PATIENT [None]
  - MUSCULOSKELETAL PAIN [None]
  - UNEVALUABLE EVENT [None]
  - MENTAL DISORDER [None]
  - EXCESSIVE EYE BLINKING [None]
  - DRUG DEPENDENCE [None]
